FAERS Safety Report 21029047 (Version 2)
Quarter: 2022Q3

REPORT INFORMATION
  Report Type: Spontaneous
  Country: US (occurrence: US)
  Receive Date: 20220630
  Receipt Date: 20220817
  Transmission Date: 20221027
  Serious: No
  Sender: FDA-Public Use
  Company Number: US-BAYER-2022A086956

PATIENT
  Sex: Female

DRUGS (3)
  1. JIVI [Suspect]
     Active Substance: DAMOCTOCOG ALFA PEGOL
     Indication: Factor VIII deficiency
     Dosage: 2100 IU, Q2WK
     Route: 042
  2. JIVI [Suspect]
     Active Substance: DAMOCTOCOG ALFA PEGOL
     Indication: Factor VIII deficiency
     Dosage: 2800 IU, PRN, EVERY 24 HOURS UNTIL BLEEDING IS CONTROLLED
     Route: 042
  3. JIVI [Suspect]
     Active Substance: DAMOCTOCOG ALFA PEGOL
     Indication: Factor VIII deficiency
     Dosage: UNK
     Dates: start: 20220527, end: 20220527

REACTIONS (3)
  - Bronchitis chronic [None]
  - Dizziness [None]
  - Migraine [None]
